FAERS Safety Report 7126291-4 (Version None)
Quarter: 2010Q4

REPORT INFORMATION
  Report Type: 
  Country: None (occurrence: None)
  Receive Date: 20101129
  Receipt Date: 20101116
  Transmission Date: 20110411
  Serious: Yes (Hospitalization, Disabling, Other)
  Sender: FDA-Public Use
  Company Number: US-ELI_LILLY_AND_COMPANY-US201008000646

PATIENT
  Sex: Female

DRUGS (18)
  1. FORTEO [Suspect]
     Indication: OSTEOPOROSIS
     Dosage: 20 UG, DAILY (1/D)
  2. FORTEO [Suspect]
     Dosage: 20 UG, DAILY (1/D)
  3. CYMBALTA [Suspect]
     Indication: DEPRESSION
     Dosage: 30 MG, DAILY (1/D)
  4. CYMBALTA [Suspect]
     Dosage: 60 MG, DAILY (1/D)
  5. CYMBALTA [Suspect]
     Dosage: 60 MG, 2/D
     Dates: start: 20100827
  6. TRANZINE [Concomitant]
     Dosage: UNK, UNKNOWN
  7. VITAMIN D [Concomitant]
     Dosage: UNK, UNKNOWN
  8. VITAMIN E [Concomitant]
     Dosage: UNK, UNKNOWN
  9. FISH OIL [Concomitant]
     Dosage: UNK, UNKNOWN
  10. FLAXSEED OIL [Concomitant]
     Dosage: UNK, UNKNOWN
  11. PLENDIL [Concomitant]
     Dosage: UNK, UNKNOWN
  12. PREVACID [Concomitant]
     Dosage: UNK, UNKNOWN
  13. BENICAR [Concomitant]
  14. PRILOSEC [Concomitant]
  15. CARVEDILOL [Concomitant]
     Dosage: UNK, 2/D
  16. NITROFURANTOIN [Concomitant]
  17. SIMVASTATIN [Concomitant]
     Dosage: 20 MG, DAILY (1/D)
  18. VITAMIN D [Concomitant]

REACTIONS (13)
  - BONE DISORDER [None]
  - CYSTITIS [None]
  - DEPRESSION [None]
  - DRY MOUTH [None]
  - FALL [None]
  - GAIT DISTURBANCE [None]
  - INJECTION SITE PAIN [None]
  - JOINT DISLOCATION [None]
  - MUSCLE INJURY [None]
  - NEUROPATHY PERIPHERAL [None]
  - PARALYSIS [None]
  - SURGERY [None]
  - TRANSPLANT [None]
